FAERS Safety Report 8071430-4 (Version None)
Quarter: 2012Q1

REPORT INFORMATION
  Report Type: 
  Country: None (occurrence: None)
  Receive Date: 20120125
  Receipt Date: 20120123
  Transmission Date: 20120608
  Serious: Yes (Hospitalization)
  Sender: FDA-Public Use
  Company Number: US-VERTEX PHARMACEUTICALS INC.-AE-2011-004750

PATIENT
  Sex: Male
  Weight: 110.78 kg

DRUGS (6)
  1. PEGAYS [Concomitant]
     Indication: HEPATITIS C
     Route: 058
     Dates: start: 20110930
  2. RIBAVIRIN [Concomitant]
     Indication: HEPATITIS C
     Route: 048
     Dates: start: 20110930
  3. CYMBALTA [Concomitant]
     Indication: ANXIETY
  4. METHADONE HCL [Concomitant]
     Indication: PAIN
     Route: 048
  5. CYMBALTA [Concomitant]
     Indication: DEPRESSION
     Route: 048
  6. INCIVEK [Suspect]
     Indication: HEPATITIS C
     Route: 048
     Dates: start: 20110930, end: 20111222

REACTIONS (5)
  - GOUT [None]
  - MEDICATION ERROR [None]
  - NAUSEA [None]
  - WOUND INFECTION STAPHYLOCOCCAL [None]
  - ANAEMIA [None]
